FAERS Safety Report 6909670-7 (Version None)
Quarter: 2010Q3

REPORT INFORMATION
  Report Type: 
  Country: None (occurrence: None)
  Receive Date: 20100805
  Receipt Date: 20100727
  Transmission Date: 20110219
  Serious: Yes (Hospitalization, Disabling)
  Sender: FDA-Public Use
  Company Number: DE-ABBOTT-10P-062-0660557-00

PATIENT
  Age: 71 Year
  Sex: Female

DRUGS (5)
  1. HUMIRA [Suspect]
     Indication: RHEUMATOID ARTHRITIS
     Route: 058
     Dates: start: 20060901, end: 20061001
  2. HUMIRA [Suspect]
     Route: 058
     Dates: start: 20061101
  3. METHOTREXATE SODIUM [Concomitant]
     Indication: RHEUMATOID ARTHRITIS
     Dosage: 10-15 MG PER WEEK
     Dates: end: 20040101
  4. METHOTREXATE SODIUM [Concomitant]
     Dates: start: 20100101
  5. METHOTREXATE SODIUM [Concomitant]
     Dates: end: 20040101

REACTIONS (2)
  - FOOT OPERATION [None]
  - RHEUMATOID ARTHRITIS [None]
